FAERS Safety Report 6330326-6 (Version None)
Quarter: 2009Q3

REPORT INFORMATION
  Report Type: 
  Country: None (occurrence: None)
  Receive Date: 20090826
  Receipt Date: 20090826
  Transmission Date: 20100115
  Serious: No
  Sender: FDA-Public Use
  Company Number: None

PATIENT
  Age: 37 Year
  Sex: Female
  Weight: 83.9154 kg

DRUGS (2)
  1. XENICAL [Suspect]
     Indication: BLOOD CHOLESTEROL INCREASED
     Dosage: 1 CAPSULE 3XDAY PO
     Route: 048
     Dates: start: 20090601, end: 20090615
  2. XENICAL [Suspect]
     Indication: OVERWEIGHT
     Dosage: 1 CAPSULE 3XDAY PO
     Route: 048
     Dates: start: 20090601, end: 20090615

REACTIONS (1)
  - MUSCULAR WEAKNESS [None]
